FAERS Safety Report 5291806-8 (Version None)
Quarter: 2007Q2

REPORT INFORMATION
  Report Type: 
  Country: None (occurrence: None)
  Receive Date: 20070410
  Receipt Date: 20070330
  Transmission Date: 20071010
  Serious: Yes (Hospitalization, Other)
  Sender: FDA-Public Use
  Company Number: BR-JNJFOC-20070107394

PATIENT
  Sex: Male
  Weight: 65 kg

DRUGS (14)
  1. TMC125 [Suspect]
     Route: 048
  2. TMC125 [Suspect]
     Indication: HIV INFECTION
     Route: 048
  3. TMC114 [Suspect]
     Route: 048
  4. TMC114 [Suspect]
     Indication: HIV INFECTION
     Route: 048
  5. RITONAVIR [Suspect]
     Indication: HIV INFECTION
     Route: 048
  6. GABAPENTIN [Suspect]
     Indication: DRUG USE FOR UNKNOWN INDICATION
     Route: 065
  7. GLICAZIDE [Suspect]
     Indication: DIABETES MELLITUS
     Route: 048
  8. COMBIVIR [Concomitant]
     Indication: HIV INFECTION
     Route: 048
  9. VIREAD [Concomitant]
     Indication: HIV INFECTION
     Route: 048
  10. FUZEON [Concomitant]
     Indication: HIV INFECTION
     Route: 058
  11. COTRIMOXAZOLE [Concomitant]
     Route: 048
  12. COTRIMOXAZOLE [Concomitant]
     Indication: PROPHYLAXIS
     Route: 048
  13. FLUCONAZOLE [Concomitant]
     Indication: PROPHYLAXIS
     Route: 048
  14. DIPYRONE TAB [Concomitant]
     Route: 048

REACTIONS (2)
  - ALANINE AMINOTRANSFERASE INCREASED [None]
  - PYREXIA [None]
